FAERS Safety Report 7631446-6 (Version None)
Quarter: 2011Q3

REPORT INFORMATION
  Report Type: 
  Country: None (occurrence: None)
  Receive Date: 20110725
  Receipt Date: 20110714
  Transmission Date: 20111222
  Serious: Yes (Life-Threatening, Hospitalization)
  Sender: FDA-Public Use
  Company Number: JP-ELI_LILLY_AND_COMPANY-JP201106005275

PATIENT
  Sex: Female
  Weight: 59.05 kg

DRUGS (10)
  1. BYETTA [Suspect]
     Indication: TYPE 2 DIABETES MELLITUS
     Dosage: 5 UNK, BID
     Route: 058
     Dates: start: 20110614, end: 20110616
  2. MEXITIL [Concomitant]
     Dosage: 200 MG, QD
     Route: 048
     Dates: start: 20110614
  3. METFORMIN HCL [Concomitant]
     Indication: TYPE 2 DIABETES MELLITUS
     Dosage: 500 MG, QD
     Route: 048
     Dates: start: 20091111
  4. MIGLITOL [Concomitant]
     Indication: TYPE 2 DIABETES MELLITUS
     Dosage: 50 MG, TID
     Route: 048
     Dates: start: 20101101
  5. KINEDAK [Concomitant]
     Dosage: 150 MG, QD
     Route: 048
     Dates: start: 20110530
  6. LANTUS [Concomitant]
     Indication: TYPE 2 DIABETES MELLITUS
     Dosage: UNK
     Dates: start: 20110315, end: 20110613
  7. APIDRA [Concomitant]
     Indication: TYPE 2 DIABETES MELLITUS
     Dosage: UNK
     Dates: start: 20110501, end: 20110613
  8. METFORMIN HCL [Concomitant]
     Dosage: 750 MG, QD
     Route: 048
     Dates: start: 20110614, end: 20110616
  9. MIGLITOL [Concomitant]
     Dosage: 50 MG, TID
     Route: 048
     Dates: start: 20110614, end: 20110616
  10. METFORMIN HCL [Concomitant]
     Dosage: 750 MG, QD
     Route: 048
     Dates: start: 20101101

REACTIONS (1)
  - DIABETIC KETOACIDOSIS [None]
